FAERS Safety Report 24106975 (Version 1)
Quarter: 2024Q3

REPORT INFORMATION
  Report Type: Spontaneous
  Country: US (occurrence: US)
  Receive Date: 20240717
  Receipt Date: 20240717
  Transmission Date: 20241017
  Serious: No
  Sender: SANOFI AVENTIS
  Company Number: US-SA-2024SA012342

PATIENT
  Age: 13 Year
  Sex: Male

DRUGS (2)
  1. ALTUVIIIO [Suspect]
     Active Substance: EFANESOCTOCOG ALFA
     Dosage: 1902 U, QW
  2. ALTUVIIIO [Suspect]
     Active Substance: EFANESOCTOCOG ALFA
     Dosage: 2000 U

REACTIONS (3)
  - Haemorrhage [Unknown]
  - Joint swelling [Unknown]
  - Joint warmth [Unknown]

NARRATIVE: CASE EVENT DATE: 20240709
